FAERS Safety Report 15703504 (Version 1)
Quarter: 2018Q4

REPORT INFORMATION
  Report Type: Spontaneous
  Country: US (occurrence: US)
  Receive Date: 20181210
  Receipt Date: 20181210
  Transmission Date: 20190205
  Serious: No
  Sender: FDA-Public Use
  Company Number: US-PFIZER INC-2018501972

PATIENT
  Age: 67 Year
  Sex: Male
  Weight: 97.51 kg

DRUGS (1)
  1. CLINDAMYCIN HCL [Suspect]
     Active Substance: CLINDAMYCIN HYDROCHLORIDE
     Indication: INFECTION
     Dosage: UNK

REACTIONS (2)
  - Diarrhoea [Unknown]
  - Bowel movement irregularity [Unknown]
